FAERS Safety Report 14608629 (Version 1)
Quarter: 2018Q1

REPORT INFORMATION
  Report Type: Spontaneous
  Country: US (occurrence: US)
  Receive Date: 20180306
  Receipt Date: 20180306
  Transmission Date: 20180509
  Serious: Yes (Hospitalization)
  Sender: FDA-Public Use
  Company Number: None

PATIENT
  Sex: Male

DRUGS (10)
  1. SIMVASTATIN 40MG [Concomitant]
     Active Substance: SIMVASTATIN
  2. ZYTIGA [Suspect]
     Active Substance: ABIRATERONE ACETATE
     Indication: PROSTATE CANCER
     Route: 048
  3. AMLODIPINE [Concomitant]
     Active Substance: AMLODIPINE BESYLATE
  4. NITROGLYCERIN 0.4MG SUBLINGUAL [Concomitant]
  5. MIRTAZAPINE 15MG [Concomitant]
     Active Substance: MIRTAZAPINE
  6. FLUTICASONE NASAL SPRAY 50MCG [Concomitant]
  7. ALFUZOSIN 10MG ER [Concomitant]
  8. FENTANYL 25MCG/HR [Concomitant]
  9. IBUPROFEN 600MG [Concomitant]
     Active Substance: IBUPROFEN
  10. ENALAPRIL 20MG [Concomitant]
     Active Substance: ENALAPRIL

REACTIONS (1)
  - Fall [None]
